FAERS Safety Report 16000247 (Version 1)
Quarter: 2019Q1

REPORT INFORMATION
  Report Type: Spontaneous
  Country: US (occurrence: US)
  Receive Date: 20190225
  Receipt Date: 20190225
  Transmission Date: 20190418
  Serious: No
  Sender: FDA-Public Use
  Company Number: US-BAYER-2019-039282

PATIENT
  Age: 45 Year
  Sex: Female

DRUGS (1)
  1. ULTRAVIST [Suspect]
     Active Substance: IOPROMIDE
     Indication: COMPUTERISED TOMOGRAM
     Dosage: 100CC, ONCE
     Route: 042
     Dates: start: 20190221, end: 20190221

REACTIONS (2)
  - Dysphagia [None]
  - Headache [None]

NARRATIVE: CASE EVENT DATE: 20190221
